FAERS Safety Report 8388795-6 (Version None)
Quarter: 2012Q2

REPORT INFORMATION
  Report Type: 
  Country: None (occurrence: None)
  Receive Date: 20120528
  Receipt Date: 20120523
  Transmission Date: 20120825
  Serious: Yes (Hospitalization)
  Sender: FDA-Public Use
  Company Number: CA-AMGEN-CANSP2012028920

PATIENT
  Age: 70 Year
  Sex: Female
  Weight: 98 kg

DRUGS (10)
  1. ALLOPURINOL [Concomitant]
     Dosage: UNK
     Dates: end: 20120424
  2. ASPIRIN [Concomitant]
     Dosage: 80 MG, UNK
     Dates: end: 20120424
  3. ARTIFICIAL TEARS                   /00445101/ [Concomitant]
     Dosage: UNK UNK, PRN
     Route: 047
     Dates: start: 20120413
  4. SENNOSIDES A+B [Concomitant]
     Dosage: UNK
     Dates: start: 20120413
  5. LEVOTHYROXINE SODIUM [Concomitant]
     Dosage: 100 MUG, UNK
     Dates: start: 20120413
  6. PANTOPRAZOLE [Concomitant]
     Dosage: 40 MG, QD
     Dates: start: 20120413
  7. PERINDOPRIL ERBUMINE [Concomitant]
     Dosage: 4 MG, UNK
     Dates: start: 20120413
  8. ACETAMINOPHEN [Concomitant]
     Dosage: 975 MG, QID
     Dates: start: 20120427
  9. METFORMIN HCL [Concomitant]
     Dosage: 500 MG, UNK
     Dates: start: 20120424, end: 20120507
  10. PROLIA [Suspect]
     Indication: OSTEOPOROSIS
     Dosage: 60 MG, Q6MO
     Route: 058
     Dates: start: 20120412

REACTIONS (5)
  - PRURITUS [None]
  - ECZEMA [None]
  - REHABILITATION THERAPY [None]
  - FALL [None]
  - URTICARIA [None]
